FAERS Safety Report 11371952 (Version 4)
Quarter: 2015Q4

REPORT INFORMATION
  Report Type: Report from Study
  Country: US (occurrence: US)
  Receive Date: 20150812
  Receipt Date: 20151216
  Transmission Date: 20160304
  Serious: Yes (Life-Threatening, Other)
  Sender: FDA-Public Use
  Company Number: US-SA-2015SA119618

PATIENT
  Age: 29 Year
  Sex: Female

DRUGS (1)
  1. LEMTRADA [Suspect]
     Active Substance: ALEMTUZUMAB
     Indication: MULTIPLE SCLEROSIS
     Route: 041
     Dates: start: 20150727, end: 20150731

REACTIONS (12)
  - Chest discomfort [Recovered/Resolved]
  - Hypoaesthesia [Unknown]
  - Multiple sclerosis relapse [Unknown]
  - Scan abnormal [Unknown]
  - Central nervous system lesion [Unknown]
  - Paraesthesia [Unknown]
  - Fatigue [Unknown]
  - Drug ineffective [Unknown]
  - Chest pain [Recovered/Resolved]
  - Abdominal pain upper [Recovered/Resolved]
  - Band sensation [Unknown]
  - Flatulence [Not Recovered/Not Resolved]

NARRATIVE: CASE EVENT DATE: 2015
